FAERS Safety Report 13929958 (Version 2)
Quarter: 2017Q4

REPORT INFORMATION
  Report Type: Spontaneous
  Country: FR (occurrence: FR)
  Receive Date: 20170901
  Receipt Date: 20171012
  Transmission Date: 20180320
  Serious: Yes (Hospitalization)
  Sender: FDA-Public Use
  Company Number: FR-PFIZER INC-2017372464

PATIENT
  Age: 60 Year
  Sex: Female

DRUGS (20)
  1. AMITRIPTYLINE [Concomitant]
     Active Substance: AMITRIPTYLINE
     Dosage: UNK
  2. PREDNISONE. [Concomitant]
     Active Substance: PREDNISONE
     Dosage: UNK
  3. LEVOTHYROXINE. [Concomitant]
     Active Substance: LEVOTHYROXINE
     Dosage: UNK
  4. PACLITAXEL. [Concomitant]
     Active Substance: PACLITAXEL
     Indication: BREAST CANCER
     Dosage: SINGLE
     Dates: start: 20170818, end: 20170818
  5. ONDANSETRON [Concomitant]
     Active Substance: ONDANSETRON
     Dosage: UNK
     Dates: start: 20170928, end: 20170928
  6. CARBOPLATINE HOSPIRA [Suspect]
     Active Substance: CARBOPLATIN
     Dosage: 550 MG, CYCLIC
     Route: 042
     Dates: start: 20170818, end: 20170818
  7. ONDANSETRON [Concomitant]
     Active Substance: ONDANSETRON
     Indication: PREMEDICATION
     Dosage: UNK
     Dates: start: 20170818, end: 20170818
  8. CARBOPLATINE HOSPIRA [Suspect]
     Active Substance: CARBOPLATIN
     Indication: BREAST CANCER
     Dosage: 550 MG, CYCLIC
     Route: 042
     Dates: start: 20170818, end: 20170818
  9. FENTANYL. [Concomitant]
     Active Substance: FENTANYL
     Dosage: UNK
  10. DEXCHLORPHENIRAMINE [Concomitant]
     Active Substance: DEXCHLORPHENIRAMINE
     Indication: PREMEDICATION
     Dosage: UNK
     Dates: start: 20170818, end: 20170818
  11. INNOHEP [Concomitant]
     Active Substance: TINZAPARIN SODIUM
     Dosage: UNK
  12. DEXCHLORPHENIRAMINE [Concomitant]
     Active Substance: DEXCHLORPHENIRAMINE
     Dosage: UNK
     Dates: start: 20170928, end: 20170928
  13. LEVETIRACETAM. [Concomitant]
     Active Substance: LEVETIRACETAM
     Dosage: UNK
  14. LANSOPRAZOLE. [Concomitant]
     Active Substance: LANSOPRAZOLE
     Dosage: UNK
  15. BETAHISTINE [Concomitant]
     Active Substance: BETAHISTINE
     Dosage: UNK
  16. METHYLPREDNISOLONE. [Concomitant]
     Active Substance: METHYLPREDNISOLONE
     Indication: PREMEDICATION
     Dosage: UNK
     Dates: start: 20170818, end: 20170818
  17. DEXAMETHASONE. [Concomitant]
     Active Substance: DEXAMETHASONE
     Dosage: 20 MG, SINGLE
     Dates: start: 20170928, end: 20170928
  18. CARBOPLATINE HOSPIRA [Suspect]
     Active Substance: CARBOPLATIN
     Dosage: 520 MG, CYCLIC
     Dates: start: 20170928, end: 20170928
  19. DIAZEPAM. [Concomitant]
     Active Substance: DIAZEPAM
     Dosage: UNK
  20. METHYLPREDNISOLONE. [Concomitant]
     Active Substance: METHYLPREDNISOLONE
     Dosage: 120 MG, SINGLE
     Dates: start: 20170928, end: 20170928

REACTIONS (5)
  - Loss of consciousness [Recovered/Resolved]
  - Erythema [Recovered/Resolved]
  - Hypertension [Recovered/Resolved]
  - Oedema [Recovered/Resolved]
  - Neck pain [Recovered/Resolved]

NARRATIVE: CASE EVENT DATE: 20170818
